FAERS Safety Report 5311547-8 (Version None)
Quarter: 2007Q2

REPORT INFORMATION
  Report Type: 
  Country: None (occurrence: None)
  Receive Date: 20070430
  Receipt Date: 20070419
  Transmission Date: 20071010
  Serious: Yes (Hospitalization)
  Sender: FDA-Public Use
  Company Number: FR-GLAXOSMITHKLINE-B0468370A

PATIENT
  Age: 78 Year
  Sex: Female
  Weight: 47 kg

DRUGS (3)
  1. ALKERAN [Suspect]
     Route: 048
     Dates: start: 20070207
  2. SOLU-MEDROL [Concomitant]
     Dosage: 250MG PER DAY
     Dates: start: 20070207
  3. DEXAMETHASONE 0.5MG TAB [Concomitant]
     Dosage: 40MG PER DAY
     Dates: start: 20070207, end: 20070201

REACTIONS (3)
  - ASTHENIA [None]
  - BONE MARROW FAILURE [None]
  - PYREXIA [None]
